FAERS Safety Report 14536740 (Version 1)
Quarter: 2018Q1

REPORT INFORMATION
  Report Type: Spontaneous
  Country: US (occurrence: US)
  Receive Date: 20180215
  Receipt Date: 20180215
  Transmission Date: 20180509
  Serious: Yes (Hospitalization)
  Sender: FDA-Public Use
  Company Number: None

PATIENT
  Age: 61 Year
  Sex: Male
  Weight: 77.2 kg

DRUGS (4)
  1. GEMCITABINE [Suspect]
     Active Substance: GEMCITABINE\GEMCITABINE HYDROCHLORIDE
     Indication: PANCREATIC CARCINOMA
     Dosage: 28DAYCYCLE
     Route: 042
     Dates: start: 20170802, end: 20170913
  2. NAB-PACLITAXEL [Suspect]
     Active Substance: PACLITAXEL
     Indication: PANCREATIC CARCINOMA
     Dosage: 28DAYCYCLE
     Route: 042
     Dates: start: 20171009, end: 20171115
  3. CHEMORADIATION [Suspect]
     Active Substance: UNSPECIFIED INGREDIENT
     Indication: PANCREATIC CARCINOMA
     Dosage: 5DAY/WEEK  EXTERNAL BEAM
     Route: 042
     Dates: start: 20171009, end: 20171115
  4. 5-FU [Suspect]
     Active Substance: FLUOROURACIL
     Dosage: 5DAY/WEEK  IV PUMP

REACTIONS (4)
  - Gastric ulcer perforation [None]
  - Nausea [None]
  - Abdominal pain [None]
  - Vomiting [None]

NARRATIVE: CASE EVENT DATE: 20180208
